FAERS Safety Report 9607058 (Version 2)
Quarter: 2013Q4

REPORT INFORMATION
  Report Type: Spontaneous
  Country: US (occurrence: US)
  Receive Date: 20131009
  Receipt Date: 20131108
  Transmission Date: 20140711
  Serious: Yes (Hospitalization)
  Sender: FDA-Public Use
  Company Number: US-BIOGENIDEC-2013BI095478

PATIENT
  Age: 58 Year
  Sex: Female

DRUGS (2)
  1. AVONEX [Suspect]
     Indication: MULTIPLE SCLEROSIS
     Route: 030
     Dates: start: 20040102
  2. GABAPENTIN [Concomitant]
     Indication: TREMOR
     Route: 048
     Dates: start: 2002

REACTIONS (5)
  - Tremor [Recovered/Resolved]
  - Cognitive disorder [Recovered/Resolved]
  - Central nervous system lesion [Unknown]
  - Insomnia [Recovered/Resolved]
  - Fatigue [Recovered/Resolved]
